FAERS Safety Report 12202618 (Version 1)
Quarter: 2016Q1

REPORT INFORMATION
  Report Type: Spontaneous
  Country: US (occurrence: US)
  Receive Date: 20160322
  Receipt Date: 20160322
  Transmission Date: 20160526
  Serious: No
  Sender: FDA-Public Use
  Company Number: US-ASTRAZENECA-2016SE20222

PATIENT

DRUGS (6)
  1. BYETTA [Suspect]
     Active Substance: EXENATIDE
     Route: 065
  2. LANTUS [Suspect]
     Active Substance: INSULIN GLARGINE
     Route: 065
  3. HUMALOG [Suspect]
     Active Substance: INSULIN LISPRO
     Route: 065
  4. NOVOLOG [Suspect]
     Active Substance: INSULIN ASPART
     Route: 065
  5. TOUJEO [Concomitant]
     Active Substance: INSULIN GLARGINE
  6. METFORMIN [Suspect]
     Active Substance: METFORMIN HYDROCHLORIDE
     Dosage: NON-AZ
     Route: 065

REACTIONS (1)
  - Blood glucose increased [Unknown]
